FAERS Safety Report 17329054 (Version 1)
Quarter: 2020Q1

REPORT INFORMATION
  Report Type: Spontaneous
  Country: US (occurrence: US)
  Receive Date: 20200127
  Receipt Date: 20200127
  Transmission Date: 20200409
  Serious: Yes (Hospitalization)
  Sender: FDA-Public Use
  Company Number: US-NOVOPROD-708376

PATIENT
  Age: 71 Year
  Sex: Male
  Weight: 85.71 kg

DRUGS (2)
  1. METFORMIN [Concomitant]
     Active Substance: METFORMIN HYDROCHLORIDE
     Indication: TYPE 2 DIABETES MELLITUS
     Dosage: UNK
  2. OZEMPIC [Suspect]
     Active Substance: SEMAGLUTIDE
     Indication: TYPE 2 DIABETES MELLITUS
     Dosage: 0.25 MG, QW
     Route: 058
     Dates: start: 20191202

REACTIONS (4)
  - Weight decreased [Unknown]
  - Intentional product misuse [Unknown]
  - Bronchitis [Recovering/Resolving]
  - Respiratory arrest [Unknown]

NARRATIVE: CASE EVENT DATE: 201912
